FAERS Safety Report 5269478-8 (Version None)
Quarter: 2007Q1

REPORT INFORMATION
  Report Type: 
  Country: None (occurrence: None)
  Receive Date: 20070315
  Receipt Date: 20070227
  Transmission Date: 20070707
  Serious: Yes (Other)
  Sender: FDA-Public Use
  Company Number: 2007307935

PATIENT
  Age: 61 Year
  Sex: Female
  Weight: 70.7611 kg

DRUGS (7)
  1. SUDAFED 12 HOUR [Suspect]
     Indication: SINUS CONGESTION
     Dosage: 1 TABLET ONCE DAILY (1 IN 1 D), ORAL
     Route: 048
     Dates: start: 20060101
  2. REACTINE (CETIRIZINE HYDROCHLORIDE) [Suspect]
     Indication: HYPERSENSITIVITY
     Dosage: 10 MG (10 MG)
     Dates: start: 20020101
  3. CELEBREX [Concomitant]
  4. NASONEX [Concomitant]
  5. SALBUTAMOL (SALBUTAMOL) [Concomitant]
  6. LIPITOR [Concomitant]
  7. PULMICORT [Concomitant]

REACTIONS (6)
  - ASTHMA [None]
  - CONDITION AGGRAVATED [None]
  - INAPPROPRIATE SCHEDULE OF DRUG ADMINISTRATION [None]
  - RENAL IMPAIRMENT [None]
  - SINUS DISORDER [None]
  - SINUS POLYP [None]
